FAERS Safety Report 23879742 (Version 1)
Quarter: 2024Q2

REPORT INFORMATION
  Report Type: Spontaneous
  Country: US (occurrence: US)
  Receive Date: 20240521
  Receipt Date: 20240521
  Transmission Date: 20240716
  Serious: No
  Sender: FDA-Public Use
  Company Number: US-ASTELLAS-2024US011173

PATIENT
  Sex: Female
  Weight: 51.701 kg

DRUGS (2)
  1. VEOZAH [Suspect]
     Active Substance: FEZOLINETANT
     Indication: Hot flush
     Route: 065
     Dates: start: 202403
  2. VEOZAH [Suspect]
     Active Substance: FEZOLINETANT
     Indication: Night sweats

REACTIONS (4)
  - Indifference [Recovered/Resolved]
  - Rash [Recovered/Resolved]
  - Sunburn [Recovered/Resolved]
  - Hot flush [Unknown]
